FAERS Safety Report 26215923 (Version 1)
Quarter: 2025Q4

REPORT INFORMATION
  Report Type: Spontaneous
  Country: US (occurrence: US)
  Receive Date: 20251231
  Receipt Date: 20251231
  Transmission Date: 20260117
  Serious: Yes (Hospitalization)
  Sender: BIOVITRUM
  Company Number: US-BIOVITRUM-2025-US-018234

PATIENT
  Age: 79 Year
  Sex: Female

DRUGS (1)
  1. VONJO [Suspect]
     Active Substance: PACRITINIB
     Indication: Myelofibrosis
     Dosage: TWICE A DAY
     Route: 048
     Dates: start: 20250211

REACTIONS (7)
  - Abdominal pain upper [Unknown]
  - Adverse drug reaction [Unknown]
  - Diarrhoea [Unknown]
  - White blood cell count increased [Unknown]
  - Splenomegaly [Unknown]
  - Back pain [Unknown]
  - Product dose omission issue [Unknown]
